FAERS Safety Report 7261867-5 (Version None)
Quarter: 2011Q1

REPORT INFORMATION
  Report Type: 
  Country: None (occurrence: None)
  Receive Date: 20110120
  Receipt Date: 20110104
  Transmission Date: 20110831
  Serious: Yes (Other)
  Sender: FDA-Public Use
  Company Number: 2011000039

PATIENT
  Age: 87 Year
  Sex: Female
  Weight: 57.6068 kg

DRUGS (8)
  1. LOVENOX [Concomitant]
  2. GEMCITABINE [Concomitant]
  3. EYE DROPS [Concomitant]
  4. AMIODARONE (AMIODARONE) [Concomitant]
  5. METOPROLOL SUCCINATE [Concomitant]
  6. TARCEVA [Suspect]
     Indication: LUNG NEOPLASM MALIGNANT
     Dosage: 150 MG, QD, ORAL
     Route: 048
     Dates: start: 20101216
  7. SIMVASTATIN [Concomitant]
  8. AFRIN [Concomitant]

REACTIONS (3)
  - PULMONARY OEDEMA [None]
  - OCULAR HYPERAEMIA [None]
  - RASH [None]
